FAERS Safety Report 14989321 (Version 1)
Quarter: 2018Q2

REPORT INFORMATION
  Report Type: Spontaneous
  Country: RU (occurrence: RU)
  Receive Date: 20180608
  Receipt Date: 20180608
  Transmission Date: 20180711
  Serious: Yes (Other)
  Sender: FDA-Public Use
  Company Number: RU-009507513-1805RUS008331

PATIENT
  Age: 42 Year
  Sex: Female

DRUGS (1)
  1. NUVARING [Suspect]
     Active Substance: ETHINYL ESTRADIOL\ETONOGESTREL
     Indication: CONTRACEPTION
     Dosage: 1 RING, UNK
     Route: 067
     Dates: start: 201705

REACTIONS (4)
  - Maternal exposure before pregnancy [Recovered/Resolved]
  - Abortion induced [Recovered/Resolved]
  - Vulvovaginal inflammation [Unknown]
  - Ectropion of cervix [Recovered/Resolved]

NARRATIVE: CASE EVENT DATE: 2017
